FAERS Safety Report 5304526-8 (Version None)
Quarter: 2007Q2

REPORT INFORMATION
  Report Type: 
  Country: None (occurrence: None)
  Receive Date: 20070417
  Receipt Date: 20070417
  Transmission Date: 20071010
  Serious: Yes (Death)
  Sender: FDA-Public Use
  Company Number: None

PATIENT
  Age: 77 Year
  Sex: Male
  Weight: 95.2554 kg

DRUGS (2)
  1. ALEVE [Suspect]
     Indication: HIP SURGERY
     Dosage: 2 TABLETS ONCE ORAL
     Route: 048
     Dates: start: 20070314
  2. ALEVE [Suspect]
     Indication: PROCEDURAL PAIN
     Dosage: 2 TABLETS ONCE ORAL
     Route: 048
     Dates: start: 20070314

REACTIONS (4)
  - ANAPHYLACTIC REACTION [None]
  - CARDIAC ARREST [None]
  - DROOLING [None]
  - FALL [None]
